FAERS Safety Report 8623600-1 (Version None)
Quarter: 2012Q3

REPORT INFORMATION
  Report Type: 
  Country: None (occurrence: None)
  Receive Date: 20120827
  Receipt Date: 20120816
  Transmission Date: 20120928
  Serious: Yes (Hospitalization)
  Sender: FDA-Public Use
  Company Number: US-ASTELLAS-2012US002813

PATIENT
  Sex: Female
  Weight: 17 kg

DRUGS (1)
  1. TACROLIMUS [Suspect]
     Indication: DERMATITIS ATOPIC
     Dosage: 0.03 %, WEEKLY
     Route: 061
     Dates: start: 20090824

REACTIONS (5)
  - INFLUENZA [None]
  - OXYGEN SATURATION DECREASED [None]
  - BRONCHIAL HYPERREACTIVITY [None]
  - ASTHMA [None]
  - HYPOXIA [None]
